FAERS Safety Report 4580506-5 (Version None)
Quarter: 2005Q1

REPORT INFORMATION
  Report Type: 
  Country: None (occurrence: None)
  Receive Date: 20050214
  Receipt Date: 20040210
  Transmission Date: 20050727
  Serious: No
  Sender: FDA-Public Use
  Company Number: US-GLAXOSMITHKLINE-A0497774A

PATIENT
  Age: 27 Year
  Sex: Female

DRUGS (2)
  1. LAMICTAL [Suspect]
     Indication: BIPOLAR DISORDER
     Dosage: 275MG PER DAY
     Route: 048
     Dates: start: 20030912
  2. KLONOPIN [Concomitant]

REACTIONS (3)
  - ASTHENIA [None]
  - PARAESTHESIA [None]
  - SENSATION OF HEAVINESS [None]
